FAERS Safety Report 8618304-5 (Version None)
Quarter: 2012Q3

REPORT INFORMATION
  Report Type: 
  Country: None (occurrence: None)
  Receive Date: 20120824
  Receipt Date: 20120817
  Transmission Date: 20120928
  Serious: Yes (Other)
  Sender: FDA-Public Use
  Company Number: US-BIOGENIDEC-2012BI032468

PATIENT
  Age: 56 Year
  Sex: Female

DRUGS (2)
  1. AVONEX [Suspect]
     Indication: MULTIPLE SCLEROSIS
     Route: 030
     Dates: start: 20090605, end: 20090901
  2. AVONEX [Suspect]
     Route: 030
     Dates: start: 20120712

REACTIONS (6)
  - SLEEP APNOEA SYNDROME [None]
  - PULMONARY OEDEMA [None]
  - INJECTION SITE PAIN [None]
  - INFLUENZA LIKE ILLNESS [None]
  - PULMONARY HYPERTENSION [None]
  - FLUID RETENTION [None]
